FAERS Safety Report 7576321-0 (Version None)
Quarter: 2011Q2

REPORT INFORMATION
  Report Type: 
  Country: None (occurrence: None)
  Receive Date: 20110628
  Receipt Date: 20110106
  Transmission Date: 20111010
  Serious: Yes (Hospitalization, Other)
  Sender: FDA-Public Use
  Company Number: US-BAYER-201034309NA

PATIENT
  Age: 15 Year
  Sex: Female
  Weight: 61.224 kg

DRUGS (16)
  1. ZANTAC [Concomitant]
  2. DIAZEPAM [Concomitant]
  3. RANITIDINE [Concomitant]
  4. SLUOXETINE [Suspect]
     Indication: MULTIPLE ALLERGIES
     Dosage: UNK UNK, QD
     Dates: start: 20080101
  5. YAZ [Suspect]
     Indication: CONTRACEPTION
     Dosage: UNK
     Route: 048
     Dates: start: 20080501, end: 20091101
  6. TRAZODONE HCL [Concomitant]
  7. LORATADINE [Concomitant]
  8. LUNESTA [Concomitant]
     Indication: INSOMNIA
     Dosage: UNK UNK, QD
     Dates: start: 20080101
  9. VENTOLIN HFA [Concomitant]
  10. ASMANEX TWISTHALER [Concomitant]
     Indication: MULTIPLE ALLERGIES
     Dosage: UNK UNK, QD
     Dates: start: 20080101
  11. BUSPIRONE HCL [Concomitant]
     Indication: ATTENTION DEFICIT/HYPERACTIVITY DISORDER
     Dosage: UNK UNK, QD
     Dates: start: 20080101
  12. CLONIDINE [Concomitant]
  13. CETIRIZINE HCL [Concomitant]
     Indication: MULTIPLE ALLERGIES
     Dosage: UNK UNK, QD
     Dates: start: 20080101
  14. NASACORT [Concomitant]
  15. SINGULAIR [Concomitant]
     Indication: MULTIPLE ALLERGIES
     Dosage: UNK UNK, QD
     Dates: start: 20080101
  16. BENTOLIN [Concomitant]
     Indication: MULTIPLE ALLERGIES
     Dosage: UNK UNK, QD
     Dates: start: 20080101

REACTIONS (8)
  - GALLBLADDER DISORDER [None]
  - GALLBLADDER CHOLESTEROLOSIS [None]
  - BILIARY DYSKINESIA [None]
  - CHOLELITHIASIS [None]
  - ABDOMINAL PAIN [None]
  - CHOLECYSTITIS CHRONIC [None]
  - CHOLECYSTITIS [None]
  - NAUSEA [None]
